FAERS Safety Report 6970462-4 (Version None)
Quarter: 2010Q3

REPORT INFORMATION
  Report Type: 
  Country: None (occurrence: None)
  Receive Date: 20100908
  Receipt Date: 20100831
  Transmission Date: 20110219
  Serious: Yes (Death, Life-Threatening, Other)
  Sender: FDA-Public Use
  Company Number: JP-ROCHE-712050

PATIENT
  Sex: Male
  Weight: 64 kg

DRUGS (12)
  1. AVASTIN [Suspect]
     Indication: RECTAL CANCER METASTATIC
     Route: 041
     Dates: start: 20100415, end: 20100612
  2. ELPLAT [Concomitant]
     Route: 041
     Dates: start: 20100204, end: 20100612
  3. LEUCOVORIN CALCIUM [Concomitant]
     Route: 041
     Dates: start: 20100204, end: 20100612
  4. FLUOROURACIL [Concomitant]
     Route: 040
     Dates: start: 20100204, end: 20100612
  5. FLUOROURACIL [Concomitant]
     Dosage: DOSAGE ROUTE: INTRAVENOUS DRIP.
     Route: 040
     Dates: start: 20100204, end: 20100601
  6. HYPEN [Concomitant]
     Route: 048
     Dates: start: 20100114, end: 20100612
  7. HYPEN [Concomitant]
     Dosage: ROUTE: INTRAVENOUS DRIP
     Route: 048
     Dates: start: 20100204, end: 20100601
  8. PROMAC [Concomitant]
     Route: 048
     Dates: start: 20100114, end: 20100612
  9. OXYCONTIN [Concomitant]
     Route: 048
     Dates: start: 20100114, end: 20100512
  10. MAGLAX [Concomitant]
     Route: 048
     Dates: start: 20100114, end: 20100612
  11. DECADRON [Concomitant]
     Route: 042
     Dates: start: 20100204, end: 20100612
  12. GRANISETRON HCL [Concomitant]
     Route: 042
     Dates: start: 20100204, end: 20100612

REACTIONS (4)
  - ERYTHEMA [None]
  - GASTROENTERITIS RADIATION [None]
  - RECTAL CANCER [None]
  - SMALL INTESTINAL PERFORATION [None]
